FAERS Safety Report 8258901-2 (Version None)
Quarter: 2012Q2

REPORT INFORMATION
  Report Type: 
  Country: None (occurrence: None)
  Receive Date: 20120404
  Receipt Date: 20120330
  Transmission Date: 20120825
  Serious: Yes (Hospitalization)
  Sender: FDA-Public Use
  Company Number: IT-ROCHE-1005240

PATIENT
  Age: 24 Year
  Sex: Male
  Weight: 98 kg

DRUGS (4)
  1. VEMURAFENIB [Suspect]
     Indication: METASTATIC MALIGNANT MELANOMA
     Dosage: INITIAL NUMBER OF TABLETS PER DAY: 8, LAST DOSE PRIOR TO SAE 23/SEP/2011
     Route: 048
     Dates: start: 20110719
  2. VEMURAFENIB [Suspect]
     Dates: start: 20110802
  3. GASTRO GEL [Concomitant]
     Dates: start: 20110923, end: 20111011
  4. NEXIUM [Concomitant]
     Dates: start: 20110923, end: 20111011

REACTIONS (1)
  - ABDOMINAL PAIN UPPER [None]
